FAERS Safety Report 8082000-6 (Version None)
Quarter: 2012Q1

REPORT INFORMATION
  Report Type: 
  Country: None (occurrence: None)
  Receive Date: 20120130
  Receipt Date: 20120127
  Transmission Date: 20120608
  Serious: No
  Sender: FDA-Public Use
  Company Number: US-AMGEN-USASP2011052747

PATIENT
  Sex: Female

DRUGS (1)
  1. PROLIA [Suspect]
     Dates: start: 20110401

REACTIONS (1)
  - OROPHARYNGEAL BLISTERING [None]
